FAERS Safety Report 4379399-0 (Version None)
Quarter: 2004Q2

REPORT INFORMATION
  Report Type: 
  Country: None (occurrence: None)
  Receive Date: 20040617
  Receipt Date: 20040607
  Transmission Date: 20050107
  Serious: Yes (Hospitalization)
  Sender: FDA-Public Use
  Company Number: KR-BRISTOL-MYERS SQUIBB COMPANY-12609905

PATIENT
  Age: 37 Year
  Sex: Female

DRUGS (4)
  1. CEFZIL [Suspect]
     Indication: INFECTION PROPHYLAXIS
     Route: 048
     Dates: start: 20040327, end: 20040402
  2. CEFZIL [Suspect]
     Indication: TONSILLITIS
     Route: 048
     Dates: start: 20040327, end: 20040402
  3. THENOTHIOLA SODIUM [Concomitant]
     Dates: start: 20040327, end: 20040402
  4. ACECLOFENAC [Concomitant]
     Dates: start: 20040327, end: 20040402

REACTIONS (5)
  - ALANINE AMINOTRANSFERASE INCREASED [None]
  - ASPARTATE AMINOTRANSFERASE INCREASED [None]
  - BILIRUBIN CONJUGATED INCREASED [None]
  - BLOOD BILIRUBIN INCREASED [None]
  - PHARYNGOLARYNGEAL PAIN [None]
